FAERS Safety Report 6336403-8 (Version None)
Quarter: 2009Q3

REPORT INFORMATION
  Report Type: 
  Country: None (occurrence: None)
  Receive Date: 20090901
  Receipt Date: 20071129
  Transmission Date: 20100115
  Serious: Yes (Life-Threatening, Other)
  Sender: FDA-Public Use
  Company Number: JP-NOVOPROD-268880

PATIENT
  Sex: Male
  Weight: 60 kg

DRUGS (18)
  1. NOVOLIN R [Suspect]
     Indication: INSULIN-REQUIRING TYPE 2 DIABETES MELLITUS
     Dosage: 30 IU, QD
     Route: 058
     Dates: start: 20070202
  2. NOVOLIN N [Suspect]
     Indication: INSULIN-REQUIRING TYPE 2 DIABETES MELLITUS
     Dosage: UNKNOWN
     Route: 058
     Dates: start: 20061121, end: 20061212
  3. NOVORAPID CHU FLEXPEN [Suspect]
     Indication: INSULIN-REQUIRING TYPE 2 DIABETES MELLITUS
     Dosage: 10-30 IU
     Route: 058
     Dates: start: 20061212, end: 20070201
  4. NOVORAPID 30 MIX CHU FLEXPEN [Suspect]
     Indication: INSULIN-REQUIRING TYPE 2 DIABETES MELLITUS
     Dosage: UNKNOWN
     Route: 058
     Dates: start: 20061109, end: 20061116
  5. MUCOSTA [Concomitant]
     Indication: GASTRIC ULCER
     Dosage: 300 MG, QD
     Route: 048
  6. CEROCRAL [Concomitant]
     Indication: CEREBRAL INFARCTION
     Dosage: 60 MG, QD
     Route: 048
  7. METHYCOBAL                         /00324901/ [Concomitant]
     Indication: DIABETIC NEUROPATHY
     Dosage: 1500 MG, QD
     Route: 048
  8. KINEDAK [Concomitant]
     Indication: DIABETIC NEUROPATHY
     Dosage: 150 MG, QD
     Route: 048
  9. EBRANTIL                           /00631801/ [Concomitant]
     Indication: BENIGN PROSTATIC HYPERPLASIA
     Dosage: 90 MG, QD
     Route: 048
  10. CHLORMADINONE ACETATE TAB [Concomitant]
     Indication: BENIGN PROSTATIC HYPERPLASIA
     Dosage: 50 MG, QD
     Route: 048
  11. PLETAL [Concomitant]
     Indication: CEREBRAL INFARCTION
     Dosage: 200 MG, QD
     Route: 048
  12. KAMAG G [Concomitant]
     Indication: CONSTIPATION
     Dosage: 1.2 G, QD
     Route: 048
  13. PURSENNID                          /00571902/ [Concomitant]
     Indication: CONSTIPATION
     Dosage: 24 MG, QD
     Route: 048
  14. ACTOS [Concomitant]
     Indication: TYPE 2 DIABETES MELLITUS
     Dosage: 30 MG, QD
     Route: 048
  15. FLIVAS [Concomitant]
     Indication: BENIGN PROSTATIC HYPERPLASIA
     Dosage: 50 MG, QD
     Route: 048
  16. BESACOLIN [Concomitant]
     Indication: BENIGN PROSTATIC HYPERPLASIA
     Dosage: 30 MG, QD
     Route: 048
  17. BASEN [Concomitant]
     Indication: TYPE 2 DIABETES MELLITUS
     Dosage: .9 MG, QD
     Route: 048
     Dates: start: 20061214, end: 20070307
  18. GAMMAGLOBULIN                      /00025201/ [Concomitant]

REACTIONS (3)
  - ANTI-INSULIN ANTIBODY POSITIVE [None]
  - BLOOD GLUCOSE FLUCTUATION [None]
  - HYPOGLYCAEMIA [None]
